FAERS Safety Report 8410124-X (Version None)
Quarter: 2012Q2

REPORT INFORMATION
  Report Type: 
  Country: None (occurrence: None)
  Receive Date: 20120605
  Receipt Date: 20120531
  Transmission Date: 20120825
  Serious: Yes (Death)
  Sender: FDA-Public Use
  Company Number: US-US-EMD SERONO, INC.-7132056

PATIENT
  Sex: Female
  Weight: 59 kg

DRUGS (6)
  1. VITAMIN D [Concomitant]
     Indication: PRODUCT USED FOR UNKNOWN INDICATION
  2. REBIF [Suspect]
     Indication: MULTIPLE SCLEROSIS
     Route: 058
     Dates: start: 20111223
  3. MIRTAZAPINE [Concomitant]
     Indication: BIPOLAR I DISORDER
  4. GABAPENTIN [Concomitant]
     Indication: BIPOLAR I DISORDER
  5. LAMOTRIGINE [Concomitant]
     Indication: BIPOLAR I DISORDER
  6. OLANZIPINE [Concomitant]
     Indication: BIPOLAR I DISORDER

REACTIONS (1)
  - MULTIPLE SCLEROSIS [None]
